FAERS Safety Report 7592511-5 (Version None)
Quarter: 2011Q2

REPORT INFORMATION
  Report Type: 
  Country: None (occurrence: None)
  Receive Date: 20110628
  Receipt Date: 20110614
  Transmission Date: 20111010
  Serious: Yes (Hospitalization)
  Sender: FDA-Public Use
  Company Number: 2011SP027918

PATIENT
  Age: 82 Year
  Sex: Female

DRUGS (12)
  1. ATARAX [Suspect]
     Indication: ANXIETY
     Dosage: 1 DF, QD, PO
     Route: 048
     Dates: start: 20110223, end: 20110224
  2. CLARITHROMYCIN [Suspect]
     Indication: BRONCHITIS
     Dosage: PO
     Route: 048
     Dates: start: 20110131, end: 20110204
  3. MOTILIUM [Concomitant]
  4. REPAGLINIDE [Concomitant]
  5. CLARITIN [Suspect]
     Indication: DRUG HYPERSENSITIVITY
     Dosage: PO
     Route: 048
     Dates: start: 20110223, end: 20110224
  6. CEFUROXIME [Suspect]
     Indication: BRONCHITIS
     Dosage: PO
     Route: 048
     Dates: start: 20110204, end: 20110205
  7. UMULINE [Concomitant]
  8. PANCRELASE [Concomitant]
  9. MOXIFLOXACIN HYDROCHLORIDE [Suspect]
     Indication: BRONCHITIS
     Dosage: PO
     Route: 048
     Dates: start: 20110124, end: 20110130
  10. RAMIPRIL [Concomitant]
  11. HUMALOG [Concomitant]
  12. FURADANTIN [Concomitant]

REACTIONS (2)
  - ANXIETY [None]
  - LEUKOCYTOCLASTIC VASCULITIS [None]
